FAERS Safety Report 6637872-6 (Version None)
Quarter: 2010Q1

REPORT INFORMATION
  Report Type: 
  Country: None (occurrence: None)
  Receive Date: 20100315
  Receipt Date: 20100315
  Transmission Date: 20100710
  Serious: Yes (Other)
  Sender: FDA-Public Use
  Company Number: None

PATIENT
  Age: 40 Year
  Sex: Female
  Weight: 83.9154 kg

DRUGS (1)
  1. SAPHRIS [Suspect]
     Indication: BIPOLAR DISORDER
     Dosage: 5MG ONCE DAILY SL
     Route: 060
     Dates: start: 20100312, end: 20100312

REACTIONS (14)
  - ABASIA [None]
  - COUGH [None]
  - DIZZINESS [None]
  - DYSPHAGIA [None]
  - EMOTIONAL DISORDER [None]
  - FORMICATION [None]
  - GLOSSODYNIA [None]
  - HYPOAESTHESIA ORAL [None]
  - MEMORY IMPAIRMENT [None]
  - MIOSIS [None]
  - PHARYNGEAL HYPOAESTHESIA [None]
  - PRODUCT TASTE ABNORMAL [None]
  - VERTIGO [None]
  - VISION BLURRED [None]
